FAERS Safety Report 5424449-3 (Version None)
Quarter: 2007Q3

REPORT INFORMATION
  Report Type: 
  Country: None (occurrence: None)
  Receive Date: 20070823
  Receipt Date: 20070816
  Transmission Date: 20080115
  Serious: Yes (Hospitalization)
  Sender: FDA-Public Use
  Company Number: US-MERCK-0612USA01258

PATIENT
  Age: 56 Year
  Sex: Male
  Weight: 91 kg

DRUGS (8)
  1. FOSAMAX [Suspect]
     Indication: OSTEOPOROSIS
     Route: 048
     Dates: start: 20021031, end: 20031119
  2. ACTONEL [Concomitant]
     Indication: OSTEOPOROSIS
     Route: 048
     Dates: start: 20031101
  3. PERCOCET [Concomitant]
     Route: 065
  4. ALTACE [Concomitant]
     Route: 065
  5. HYTRIN [Concomitant]
     Route: 065
  6. COLACE [Concomitant]
     Route: 065
  7. URECHOLINE [Concomitant]
     Route: 048
  8. NAPROSYN [Concomitant]
     Route: 065

REACTIONS (10)
  - ANXIETY [None]
  - ASTHENIA [None]
  - DECUBITUS ULCER [None]
  - DEPRESSION [None]
  - HERPES ZOSTER [None]
  - JAW DISORDER [None]
  - NEUROPATHY [None]
  - SKIN ULCER [None]
  - SOFT TISSUE NECROSIS [None]
  - TEMPOROMANDIBULAR JOINT SYNDROME [None]
